FAERS Safety Report 6494635-2 (Version None)
Quarter: 2009Q4

REPORT INFORMATION
  Report Type: 
  Country: None (occurrence: None)
  Receive Date: 20091214
  Receipt Date: 20090311
  Transmission Date: 20100525
  Serious: Yes (Other)
  Sender: FDA-Public Use
  Company Number: US-BRISTOL-MYERS SQUIBB COMPANY-14539274

PATIENT
  Age: 39 Year
  Sex: Female
  Weight: 107 kg

DRUGS (14)
  1. ABILIFY [Suspect]
     Indication: BIPOLAR DISORDER
  2. ABILIFY [Suspect]
     Indication: BORDERLINE PERSONALITY DISORDER
  3. CYMBALTA [Concomitant]
  4. NEURONTIN [Concomitant]
  5. REMERON [Concomitant]
  6. MIRAPEX [Concomitant]
  7. CARDIZEM [Concomitant]
  8. AMILORIDE HCL AND HYDROCHLOROTHIAZIDE [Concomitant]
  9. ATENOLOL [Concomitant]
  10. ZANTAC [Concomitant]
  11. PRILOSEC [Concomitant]
  12. LANTUS [Concomitant]
  13. NOVOLOG [Concomitant]
  14. METFORMIN [Concomitant]

REACTIONS (6)
  - BLOOD GLUCOSE INCREASED [None]
  - BRUXISM [None]
  - CONFUSIONAL STATE [None]
  - EYE DISORDER [None]
  - LOSS OF CONSCIOUSNESS [None]
  - MUSCLE RIGIDITY [None]
